FAERS Safety Report 4908204-6 (Version None)
Quarter: 2006Q1

REPORT INFORMATION
  Report Type: 
  Country: None (occurrence: None)
  Receive Date: 20060210
  Receipt Date: 20051007
  Transmission Date: 20060701
  Serious: Yes (Death, Hospitalization)
  Sender: FDA-Public Use
  Company Number: US-MERCK-0510USA05622

PATIENT
  Age: 41 Year
  Sex: Male
  Weight: 114 kg

DRUGS (15)
  1. VIOXX [Suspect]
     Indication: ARTHRITIS
     Route: 048
  2. PLAVIX [Concomitant]
     Route: 065
  3. ZOCOR [Concomitant]
     Route: 048
  4. ELAVIL [Concomitant]
     Route: 048
  5. IMDUR [Concomitant]
     Route: 065
  6. PAXIL [Concomitant]
     Route: 065
  7. NEPHROCAPS [Concomitant]
     Route: 065
  8. CLONAZEPAM [Concomitant]
     Route: 065
  9. ALTACE [Concomitant]
     Route: 065
  10. RENAGEL [Concomitant]
     Route: 065
  11. ZANTAC [Concomitant]
     Route: 065
  12. CLONIDINE [Concomitant]
     Route: 065
  13. LOPRESSOR [Concomitant]
     Route: 065
  14. SOMA [Concomitant]
     Route: 065
  15. REGLAN [Concomitant]
     Route: 065

REACTIONS (7)
  - ANXIETY [None]
  - CARDIAC ARREST [None]
  - CARDIOMYOPATHY [None]
  - CORONARY ARTERY DISEASE [None]
  - MYOCARDIAL INFARCTION [None]
  - PULMONARY HYPERTENSION [None]
  - TENDON RUPTURE [None]
